FAERS Safety Report 22254540 (Version 1)
Quarter: 2023Q2

REPORT INFORMATION
  Report Type: Spontaneous
  Country: FR (occurrence: FR)
  Receive Date: 20230426
  Receipt Date: 20230426
  Transmission Date: 20230721
  Serious: Yes (Hospitalization, Other)
  Sender: FDA-Public Use
  Company Number: None

PATIENT
  Age: 21 Year
  Sex: Male

DRUGS (4)
  1. TRAMADOL HYDROCHLORIDE [Suspect]
     Active Substance: TRAMADOL HYDROCHLORIDE
     Dosage: ABOUT 1500 MG
     Route: 048
     Dates: start: 20211022, end: 20211022
  2. CANNABIS SATIVA SUBSP. INDICA TOP [Suspect]
     Active Substance: CANNABIS SATIVA SUBSP. INDICA TOP
     Dosage: 10 JOINTS/J
     Route: 055
     Dates: start: 2012
  3. ACETAMINOPHEN [Suspect]
     Active Substance: ACETAMINOPHEN
     Dosage: 4 G
     Route: 048
     Dates: start: 20211022, end: 20211022
  4. NICOTINE [Suspect]
     Active Substance: NICOTINE
     Dosage: 10 JOINTS/J
     Route: 055
     Dates: start: 2012

REACTIONS (6)
  - Suicide attempt [Recovered/Resolved]
  - Drug abuse [Not Recovered/Not Resolved]
  - Suicidal ideation [Recovering/Resolving]
  - Mydriasis [Recovered/Resolved]
  - Anxiety [Recovering/Resolving]
  - Toxicity to various agents [Recovered/Resolved]

NARRATIVE: CASE EVENT DATE: 20120101
